FAERS Safety Report 6083344-X (Version None)
Quarter: 2009Q1

REPORT INFORMATION
  Report Type: 
  Country: None (occurrence: None)
  Receive Date: 20090217
  Receipt Date: 20090209
  Transmission Date: 20090719
  Serious: Yes (Life-Threatening)
  Sender: FDA-Public Use
  Company Number: ADE2009-0453

PATIENT
  Age: 74 Year
  Sex: Male

DRUGS (1)
  1. CEFUROXIME [Suspect]
     Indication: BRONCHITIS
     Dosage: 1 TABLET - BID - ORAL
     Route: 048
     Dates: start: 20090205, end: 20090206

REACTIONS (4)
  - APPARENT DEATH [None]
  - DYSPHAGIA [None]
  - DYSPNOEA [None]
  - FOREIGN BODY TRAUMA [None]
